FAERS Safety Report 18004059 (Version 6)
Quarter: 2020Q4

REPORT INFORMATION
  Report Type: Spontaneous
  Country: US (occurrence: US)
  Receive Date: 20200710
  Receipt Date: 20201204
  Transmission Date: 20210113
  Serious: No
  Sender: FDA-Public Use
  Company Number: US-GLAXOSMITHKLINE-US2020AMR120801

PATIENT
  Age: 52 Year
  Sex: Female

DRUGS (5)
  1. ZEJULA [Suspect]
     Active Substance: NIRAPARIB
     Indication: OVARIAN CANCER
     Dosage: 300 MG, QD
     Dates: start: 20200624
  2. ZEJULA [Suspect]
     Active Substance: NIRAPARIB
     Dosage: 3 DF, QD (300MG)
     Route: 048
  3. ZEJULA [Suspect]
     Active Substance: NIRAPARIB
     Dosage: 100 MG, QD
  4. ZEJULA [Suspect]
     Active Substance: NIRAPARIB
     Dosage: 200 MG, QD
     Dates: start: 20200626
  5. ZEJULA [Suspect]
     Active Substance: NIRAPARIB
     Dosage: 300 MG, QD
     Dates: end: 20200731

REACTIONS (19)
  - Adverse drug reaction [Unknown]
  - Feeling hot [Recovered/Resolved]
  - Feeling abnormal [Unknown]
  - Abnormal dreams [Unknown]
  - Palpitations [Unknown]
  - Blood count abnormal [Recovered/Resolved]
  - Malaise [Unknown]
  - Abdominal distension [Unknown]
  - Taste disorder [Unknown]
  - Fatigue [Unknown]
  - Vomiting [Not Recovered/Not Resolved]
  - Condition aggravated [Unknown]
  - Headache [Recovered/Resolved]
  - Constipation [Recovered/Resolved]
  - White blood cell count decreased [Unknown]
  - Nausea [Recovered/Resolved]
  - Yawning [Unknown]
  - Eructation [Unknown]
  - Myalgia [Unknown]

NARRATIVE: CASE EVENT DATE: 20200709
